FAERS Safety Report 19230813 (Version 4)
Quarter: 2022Q2

REPORT INFORMATION
  Report Type: Spontaneous
  Country: US (occurrence: None)
  Receive Date: 20210507
  Receipt Date: 20220404
  Transmission Date: 20220721
  Serious: Yes (Other)
  Sender: FDA-Public Use
  Company Number: 2021A390125

PATIENT
  Age: 55 Year
  Sex: Female
  Weight: 70.3 kg

DRUGS (45)
  1. NEXIUM [Suspect]
     Active Substance: ESOMEPRAZOLE MAGNESIUM
     Indication: Gastrooesophageal reflux disease
     Route: 048
     Dates: start: 2014, end: 2019
  2. NEXIUM [Suspect]
     Active Substance: ESOMEPRAZOLE MAGNESIUM
     Indication: Gastrooesophageal reflux disease
     Route: 048
     Dates: start: 201102, end: 201609
  3. CRESTOR [Concomitant]
     Active Substance: ROSUVASTATIN CALCIUM
     Indication: Blood cholesterol
  4. ALBUTEROL [Concomitant]
     Active Substance: ALBUTEROL
     Indication: Asthma
  5. ALBUTEROL [Concomitant]
     Active Substance: ALBUTEROL
     Indication: Asthma
  6. GAVILYTE [Concomitant]
  7. ZOLPIDEM [Concomitant]
     Active Substance: ZOLPIDEM TARTRATE
  8. DIAZEPAM [Concomitant]
     Active Substance: DIAZEPAM
  9. RENVELA [Concomitant]
     Active Substance: SEVELAMER CARBONATE
  10. LYRICA [Concomitant]
     Active Substance: PREGABALIN
  11. AMLODIPINE [Concomitant]
     Active Substance: AMLODIPINE BESYLATE
  12. CALCITRIOL [Concomitant]
     Active Substance: CALCITRIOL
  13. CYCLOBENZAPRINE [Concomitant]
     Active Substance: CYCLOBENZAPRINE
  14. DOXAZOSIN [Concomitant]
     Active Substance: DOXAZOSIN MESYLATE
  15. CLONIDINE [Concomitant]
     Active Substance: CLONIDINE
  16. TELMISARTAN [Concomitant]
     Active Substance: TELMISARTAN
  17. ONDANSETRON [Concomitant]
     Active Substance: ONDANSETRON
  18. TIZANIDINE [Concomitant]
     Active Substance: TIZANIDINE
  19. CYTRA [Concomitant]
  20. VALSARTAN [Concomitant]
     Active Substance: VALSARTAN
  21. ISONIAZID [Concomitant]
     Active Substance: ISONIAZID
  22. FLUTICASONE [Concomitant]
     Active Substance: FLUTICASONE
  23. NORFLOXACIN [Concomitant]
     Active Substance: NORFLOXACIN
  24. BUTALBITAL [Concomitant]
     Active Substance: BUTALBITAL
  25. METHYLPREDNISOLONE [Concomitant]
     Active Substance: METHYLPREDNISOLONE
  26. OMEGA 3 [Concomitant]
     Active Substance: CAPSAICIN
  27. RIFAMPIN [Concomitant]
     Active Substance: RIFAMPIN
  28. HYDRALAZINE [Concomitant]
     Active Substance: HYDRALAZINE HYDROCHLORIDE
  29. PRAVASTATIN [Concomitant]
     Active Substance: PRAVASTATIN
  30. PREDNISOLONE [Concomitant]
     Active Substance: PREDNISOLONE
  31. METRONIDAZOLE [Concomitant]
     Active Substance: METRONIDAZOLE
  32. PREDNISONE [Concomitant]
     Active Substance: PREDNISONE
  33. ZEBUTAL [Concomitant]
     Active Substance: ACETAMINOPHEN\BUTALBITAL\CAFFEINE
  34. BENZONATATE [Concomitant]
     Active Substance: BENZONATATE
  35. CEFDINIR [Concomitant]
     Active Substance: CEFDINIR
  36. ALLOPURINOL [Concomitant]
     Active Substance: ALLOPURINOL
  37. TAMSULOSIN [Concomitant]
     Active Substance: TAMSULOSIN
  38. MONTELUKAST [Concomitant]
     Active Substance: MONTELUKAST SODIUM
  39. IPRATROPIUM [Concomitant]
     Active Substance: IPRATROPIUM
  40. DICLOFENAC [Concomitant]
     Active Substance: DICLOFENAC
  41. ISOSORBIDE [Concomitant]
     Active Substance: ISOSORBIDE
  42. IRBESARTAN [Concomitant]
     Active Substance: IRBESARTAN
  43. SPIRONOLACTONE [Concomitant]
     Active Substance: SPIRONOLACTONE
  44. KETOROLAC [Concomitant]
     Active Substance: KETOROLAC TROMETHAMINE
  45. BETAMETHASONE [Concomitant]
     Active Substance: BETAMETHASONE

REACTIONS (6)
  - Chronic kidney disease [Not Recovered/Not Resolved]
  - End stage renal disease [Not Recovered/Not Resolved]
  - Nephrogenic anaemia [Unknown]
  - Renal failure [Unknown]
  - Hyperparathyroidism secondary [Unknown]
  - Chronic kidney disease-mineral and bone disorder [Unknown]

NARRATIVE: CASE EVENT DATE: 20160101
